FAERS Safety Report 7677674 (Version 2)
Quarter: 2012Q4

REPORT INFORMATION
  Report Type: 
  Country: US (occurrence: US)
  Receive Date: 20101122
  Receipt Date: 20121005
  Transmission Date: 20130627
  Serious: Yes (Life-Threatening, Hospitalization)
  Sender: FDA-Public Use
  Company Number: US-US-EMD SERONO, INC.-7028250

PATIENT
  Age: 17 None
  Sex: Male
  Weight: 49 kg

DRUGS (2)
  1. REBIF [Suspect]
     Indication: MULTIPLE SCLEROSIS
     Dates: start: 201004, end: 201204
  2. VITAMIN D [Concomitant]
     Indication: PRODUCT USED FOR UNKNOWN INDICATION
     Route: 048

REACTIONS (11)
  - Drug hypersensitivity [Recovered/Resolved]
  - Haematemesis [Recovered/Resolved]
  - Nuclear magnetic resonance imaging abnormal [Unknown]
  - Dysphagia [Recovered/Resolved]
  - Speech disorder [Recovered/Resolved]
  - Abasia [Recovered/Resolved]
  - Insomnia [Unknown]
  - Balance disorder [Unknown]
  - Nausea [Unknown]
  - Influenza like illness [Unknown]
  - Chills [Unknown]
